FAERS Safety Report 6019914-4 (Version None)
Quarter: 2008Q4

REPORT INFORMATION
  Report Type: 
  Country: None (occurrence: None)
  Receive Date: 20081223
  Receipt Date: 20081208
  Transmission Date: 20090506
  Serious: Yes (Other)
  Sender: FDA-Public Use
  Company Number: KV200801023

PATIENT
  Age: 71 Year
  Sex: Male

DRUGS (4)
  1. ISOSORBIDE MONONITRATE [Suspect]
     Indication: CARDIAC DISORDER
     Dosage: 30 MG, QD, ORAL
     Route: 048
     Dates: start: 19870101, end: 20081206
  2. PLAVIX [Concomitant]
  3. LIPITOR [Concomitant]
  4. ATACAND /0134502/ (CANDESARTAN CILEXETIL) [Concomitant]

REACTIONS (4)
  - HYPOTENSION [None]
  - OEDEMA PERIPHERAL [None]
  - PRODUCT QUALITY ISSUE [None]
  - SYNCOPE [None]
